FAERS Safety Report 19265250 (Version 1)
Quarter: 2021Q2

REPORT INFORMATION
  Report Type: Report from Study
  Country: US (occurrence: US)
  Receive Date: 20210517
  Receipt Date: 20210517
  Transmission Date: 20210717
  Serious: Yes (Hospitalization, Other)
  Sender: FDA-Public Use
  Company Number: US-EMD SERONO-9227282

PATIENT
  Age: 57 Year
  Sex: Female

DRUGS (2)
  1. REBIF [Suspect]
     Active Substance: INTERFERON BETA-1A
     Route: 058
     Dates: start: 2021
  2. REBIF [Suspect]
     Active Substance: INTERFERON BETA-1A
     Indication: MULTIPLE SCLEROSIS
     Route: 058
     Dates: start: 20190405, end: 202102

REACTIONS (7)
  - Loss of consciousness [Unknown]
  - Fall [Unknown]
  - Therapy interrupted [Not Recovered/Not Resolved]
  - Insurance issue [Unknown]
  - Injury [Unknown]
  - COVID-19 pneumonia [Unknown]
  - Dizziness [Unknown]

NARRATIVE: CASE EVENT DATE: 2021
